FAERS Safety Report 13521557 (Version 1)
Quarter: 2017Q2

REPORT INFORMATION
  Report Type: Spontaneous
  Country: US (occurrence: US)
  Receive Date: 20170506
  Receipt Date: 20170506
  Transmission Date: 20170830
  Serious: Yes (Life-Threatening)
  Sender: FDA-Public Use
  Company Number: None

PATIENT
  Age: 18 Year
  Sex: Female
  Weight: 45.45 kg

DRUGS (2)
  1. IBUPROFEN. [Concomitant]
     Active Substance: IBUPROFEN
  2. ZZZQUIL NIGHTIME SLEEP-AID [Suspect]
     Active Substance: DIPHENHYDRAMINE HYDROCHLORIDE
     Indication: SLEEP DISORDER
     Dosage: ?          QUANTITY:1 OUNCE(S);?
     Route: 048

REACTIONS (7)
  - Heart rate increased [None]
  - Panic attack [None]
  - Chest discomfort [None]
  - Sensation of foreign body [None]
  - Chills [None]
  - Dyspnoea [None]
  - Choking sensation [None]

NARRATIVE: CASE EVENT DATE: 20160619
